FAERS Safety Report 9503002 (Version 2)
Quarter: 2013Q4

REPORT INFORMATION
  Report Type: Not Available
  Country: FR (occurrence: FR)
  Receive Date: 20130906
  Receipt Date: 20131217
  Transmission Date: 20140711
  Serious: Yes (Hospitalization)
  Sender: FDA-Public Use
  Company Number: FR-ASTELLAS-2013US009364

PATIENT
  Age: 57 Year
  Sex: Male

DRUGS (2)
  1. AMBISOME [Suspect]
     Indication: CANDIDA INFECTION
     Dosage: 500 MG, UID/QD
     Route: 042
     Dates: start: 20130726, end: 20130731
  2. ANCOTIL [Suspect]
     Indication: CANDIDA INFECTION
     Dosage: 3.5 MG, UID/QD
     Route: 042
     Dates: start: 20130726, end: 20130731

REACTIONS (3)
  - Eosinophilia [Recovered/Resolved]
  - Generalised erythema [Recovered/Resolved]
  - Pyrexia [Recovered/Resolved]
